FAERS Safety Report 7178771-3 (Version None)
Quarter: 2010Q4

REPORT INFORMATION
  Report Type: 
  Country: None (occurrence: None)
  Receive Date: 20101221
  Receipt Date: 20101021
  Transmission Date: 20110411
  Serious: Yes (Hospitalization)
  Sender: FDA-Public Use
  Company Number: US-BAYER-201010004NA

PATIENT
  Sex: Female
  Weight: 77.273 kg

DRUGS (5)
  1. YASMIN [Suspect]
     Indication: ORAL CONTRACEPTION
     Dosage: 1 MONTH SUPPLY RECEIVED
     Route: 048
  2. IBUPROFEN [Concomitant]
     Route: 048
  3. AMBIEN CR [Concomitant]
     Dosage: DOSE/REGIMEN - 12.5
     Route: 048
     Dates: start: 20060101, end: 20070101
  4. HYDROCODONE [Concomitant]
     Indication: BILIARY COLIC
  5. COMPAZINE [Concomitant]
     Indication: BILIARY COLIC

REACTIONS (5)
  - CHOLECYSTITIS [None]
  - CHOLELITHIASIS [None]
  - DRUG EXPOSURE DURING PREGNANCY [None]
  - GESTATIONAL DIABETES [None]
  - PREGNANCY ON ORAL CONTRACEPTIVE [None]
